FAERS Safety Report 17404142 (Version 4)
Quarter: 2020Q1

REPORT INFORMATION
  Report Type: Report from Study
  Country: JP (occurrence: JP)
  Receive Date: 20200211
  Receipt Date: 20200331
  Transmission Date: 20200409
  Serious: Yes (Hospitalization)
  Sender: FDA-Public Use
  Company Number: JP-EISAI MEDICAL RESEARCH-EC-2020-069787

PATIENT
  Age: 64 Year
  Sex: Male
  Weight: 79 kg

DRUGS (9)
  1. RIFXIMA [Concomitant]
     Active Substance: RIFAXIMIN
  2. LENVIMA [Suspect]
     Active Substance: LENVATINIB
     Indication: HEPATOCELLULAR CARCINOMA
     Route: 048
     Dates: start: 20190212, end: 20190304
  3. PIARLE [Concomitant]
     Active Substance: LACTULOSE
  4. ANTEBATE [Concomitant]
     Active Substance: BETAMETHASONE DIPROPIONATE
  5. AMLODIPINE [Concomitant]
     Active Substance: AMLODIPINE BESYLATE
  6. ACETYLOL [Concomitant]
  7. LOSARTAN K [Concomitant]
     Active Substance: LOSARTAN POTASSIUM
  8. LENVIMA [Suspect]
     Active Substance: LENVATINIB
     Route: 048
     Dates: start: 20190305, end: 20190306
  9. LENVIMA [Suspect]
     Active Substance: LENVATINIB
     Route: 048
     Dates: start: 20190319, end: 20200131

REACTIONS (2)
  - Hepatitis E [Recovering/Resolving]
  - Renal impairment [Recovering/Resolving]

NARRATIVE: CASE EVENT DATE: 20200121
